FAERS Safety Report 15837315 (Version 2)
Quarter: 2019Q1

REPORT INFORMATION
  Report Type: Spontaneous
  Country: US (occurrence: None)
  Receive Date: 20190117
  Receipt Date: 20190130
  Transmission Date: 20190417
  Serious: Yes (Hospitalization)
  Sender: FDA-Public Use
  Company Number: 201812USGW0619

PATIENT
  Age: 24 Year
  Sex: Female
  Weight: 68.3 kg

DRUGS (10)
  1. PHENYTOIN. [Concomitant]
     Active Substance: PHENYTOIN
  2. EPIDIOLEX [Suspect]
     Active Substance: CANNABIDIOL
     Indication: EPILEPSY
     Dosage: 30 MG/KG, 2049 MILLIGRAM, QD, ORAL
     Route: 048
     Dates: start: 20180308, end: 20181107
  3. FOLIC ACID. [Concomitant]
     Active Substance: FOLIC ACID
  4. SENNA [SENNOSIDE A+B] (SENNOSIDE A+B) [Concomitant]
  5. MULTIVITAMINS [VITAMINS NOS] [Concomitant]
     Active Substance: VITAMINS
  6. VANCOMYCIN [Concomitant]
     Active Substance: VANCOMYCIN
  7. LACOSAMIDE. [Concomitant]
     Active Substance: LACOSAMIDE
  8. ONFI [Concomitant]
     Active Substance: CLOBAZAM
  9. ZOFRAN [Concomitant]
     Active Substance: ONDANSETRON HYDROCHLORIDE
  10. CLONAZEPAM. [Concomitant]
     Active Substance: CLONAZEPAM

REACTIONS (5)
  - Nausea [None]
  - Diarrhoea [None]
  - Vomiting [None]
  - Dehydration [None]
  - Weight decreased [None]

NARRATIVE: CASE EVENT DATE: 20181115
